FAERS Safety Report 8450344-1 (Version None)
Quarter: 2012Q2

REPORT INFORMATION
  Report Type: 
  Country: None (occurrence: None)
  Receive Date: 20120620
  Receipt Date: 20120618
  Transmission Date: 20120825
  Serious: Yes (Death)
  Sender: FDA-Public Use
  Company Number: PHHY2012CA051133

PATIENT
  Sex: Male

DRUGS (5)
  1. METFORMIN HCL [Concomitant]
     Dosage: 1000-500-1000 MG
  2. ZOPICLONE [Concomitant]
     Dosage: 7.5 MG, QHS
  3. ATORVASTATIN CALCIUM [Concomitant]
     Dosage: 10 MG, QHS
  4. GLYCEMIDE [Concomitant]
     Dosage: 5 DF, BID
  5. CLOZARIL [Suspect]
     Indication: SCHIZOPHRENIA
     Dosage: 200 MG, DAILY
     Route: 048
     Dates: start: 20030211

REACTIONS (1)
  - DEATH [None]
